FAERS Safety Report 12586570 (Version 4)
Quarter: 2016Q4

REPORT INFORMATION
  Report Type: Spontaneous
  Country: US (occurrence: US)
  Receive Date: 20160725
  Receipt Date: 20161011
  Transmission Date: 20170207
  Serious: Yes (Hospitalization)
  Sender: FDA-Public Use
  Company Number: US-PFIZER INC-2016274040

PATIENT
  Age: 70 Year
  Sex: Female
  Weight: 95.24 kg

DRUGS (8)
  1. NOVOLOG [Concomitant]
     Active Substance: INSULIN ASPART
     Indication: DIABETES MELLITUS
     Dosage: UNK
  2. ZETIA [Concomitant]
     Active Substance: EZETIMIBE
     Dosage: UNK
  3. ASPIRIN. [Concomitant]
     Active Substance: ASPIRIN
     Dosage: 81 MG, DAILY
  4. VITAMIN D3 [Concomitant]
     Active Substance: CHOLECALCIFEROL
     Dosage: 2000 IU, 1X/DAY
  5. PRISTIQ EXTENDED-RELEASE [Suspect]
     Active Substance: DESVENLAFAXINE SUCCINATE
     Indication: DEPRESSION
     Dosage: 50 MG, 1X/DAY
     Route: 048
     Dates: start: 20160617, end: 201607
  6. CARTIA XT [Concomitant]
     Active Substance: DILTIAZEM HYDROCHLORIDE
     Dosage: 300 MG, DAILY
  7. LOSARTAN. [Concomitant]
     Active Substance: LOSARTAN
     Dosage: 100 MG, DAILY
  8. BUPROPION. [Concomitant]
     Active Substance: BUPROPION
     Dosage: 300 MG, DAILY (2 OF 150 MG PILLS)
     Route: 048

REACTIONS (2)
  - Eye disorder [Recovered/Resolved]
  - Dizziness [Recovered/Resolved]

NARRATIVE: CASE EVENT DATE: 20160617
